FAERS Safety Report 25231371 (Version 3)
Quarter: 2025Q2

REPORT INFORMATION
  Report Type: Report from Study
  Country: US (occurrence: US)
  Receive Date: 20250423
  Receipt Date: 20250626
  Transmission Date: 20250716
  Serious: No
  Sender: BIOVITRUM
  Company Number: US-BIOVITRUM-2025-US-005705

PATIENT
  Age: 57 Year
  Sex: Male

DRUGS (3)
  1. DOPTELET [Suspect]
     Active Substance: AVATROMBOPAG MALEATE
     Indication: Immune thrombocytopenia
     Route: 048
     Dates: start: 20241205
  2. DOPTELET [Suspect]
     Active Substance: AVATROMBOPAG MALEATE
     Route: 048
  3. DOPTELET [Suspect]
     Active Substance: AVATROMBOPAG MALEATE
     Route: 048

REACTIONS (2)
  - Platelet count increased [Not Recovered/Not Resolved]
  - Platelet count decreased [Recovered/Resolved]
